FAERS Safety Report 5851743-4 (Version None)
Quarter: 2008Q3

REPORT INFORMATION
  Report Type: 
  Country: None (occurrence: None)
  Receive Date: 20080820
  Receipt Date: 20080814
  Transmission Date: 20090109
  Serious: Yes (Other)
  Sender: FDA-Public Use
  Company Number: PHEH2008US06490

PATIENT

DRUGS (2)
  1. TASIGNA [Suspect]
     Dosage: 400 MG, BID
     Route: 048
  2. TASIGNA [Suspect]
     Dosage: 400 MG, QD

REACTIONS (1)
  - ELECTROCARDIOGRAM QT PROLONGED [None]
